FAERS Safety Report 15511951 (Version 5)
Quarter: 2019Q2

REPORT INFORMATION
  Report Type: Report from Study
  Country: US (occurrence: US)
  Receive Date: 20181016
  Receipt Date: 20190528
  Transmission Date: 20190711
  Serious: Yes (Hospitalization)
  Sender: FDA-Public Use
  Company Number: US-ACTELION-A-NJ2018-172926

PATIENT
  Age: 47 Year
  Sex: Female

DRUGS (55)
  1. METOPROLOL TARTRATE. [Concomitant]
     Active Substance: METOPROLOL TARTRATE
     Dosage: 25 MG, UNK
     Dates: start: 20160801
  2. LISINOPRIL. [Concomitant]
     Active Substance: LISINOPRIL
     Dosage: 5 MG, UNK
     Dates: start: 20160801
  3. PAROXETINE. [Concomitant]
     Active Substance: PAROXETINE
     Dosage: 30 MG
  4. ZOFRAN [Concomitant]
     Active Substance: ONDANSETRON HYDROCHLORIDE
  5. ALPRAZOLAM. [Concomitant]
     Active Substance: ALPRAZOLAM
  6. NITROFURANTIN [Concomitant]
     Active Substance: NITROFURANTOIN
  7. VIRTUSSIN AC [Concomitant]
     Active Substance: CODEINE PHOSPHATE\GUAIFENESIN
  8. CLOTRIMAZOLE. [Concomitant]
     Active Substance: CLOTRIMAZOLE
     Dosage: 10 MG
     Dates: start: 20190305
  9. NYSTATIN. [Concomitant]
     Active Substance: NYSTATIN
  10. REMODULIN [Suspect]
     Active Substance: TREPROSTINIL
     Indication: PRODUCT USED FOR UNKNOWN INDICATION
     Route: 042
  11. FUROSEMIDE. [Concomitant]
     Active Substance: FUROSEMIDE
     Dosage: 10 MG/ML
     Dates: start: 20160801
  12. PREDNISONE. [Concomitant]
     Active Substance: PREDNISONE
     Dosage: 5 MG, UNK
     Dates: start: 20180503
  13. PAROXETINE. [Concomitant]
     Active Substance: PAROXETINE
     Dosage: 40 MG
     Dates: start: 20160801
  14. QUETIAPINE. [Concomitant]
     Active Substance: QUETIAPINE
     Dosage: 50 UNK
     Dates: start: 20190213
  15. QUETIAPINE. [Concomitant]
     Active Substance: QUETIAPINE
     Dosage: 200 MG
  16. VENTOLIN HFA [Concomitant]
     Active Substance: ALBUTEROL SULFATE
     Dosage: UNK
     Dates: start: 20190220
  17. PAXIL [Concomitant]
     Active Substance: PAROXETINE HYDROCHLORIDE
     Dosage: 40 MG, UNK
     Dates: start: 20160801
  18. DIPHENOXYLATE/ATROPINE [Concomitant]
     Active Substance: ATROPINE\DIPHENOXYLATE
     Dosage: 2.5 MG
     Dates: start: 20190222
  19. SPIRONOLACTONE. [Concomitant]
     Active Substance: SPIRONOLACTONE
     Dosage: 50 MG
     Dates: start: 20180222
  20. OPSUMIT [Suspect]
     Active Substance: MACITENTAN
     Indication: PULMONARY ARTERIAL HYPERTENSION
     Dosage: 10 MG, QD
     Route: 048
     Dates: start: 20160802
  21. ASPIRIN. [Concomitant]
     Active Substance: ASPIRIN
     Dosage: 81 MG
     Dates: start: 20160801
  22. MECLIZINE [Concomitant]
     Active Substance: MECLIZINE HYDROCHLORIDE
  23. OXYGEN. [Concomitant]
     Active Substance: OXYGEN
     Dosage: 2 L, UNK
  24. KETOCONAZOLE. [Concomitant]
     Active Substance: KETOCONAZOLE
  25. TIZANIDINE. [Concomitant]
     Active Substance: TIZANIDINE
  26. PROPRANOLOL [Concomitant]
     Active Substance: PROPRANOLOL HYDROCHLORIDE
     Dosage: 10 MG
     Dates: start: 20181115
  27. XANAX [Concomitant]
     Active Substance: ALPRAZOLAM
     Dosage: 0.25 MG, UNK
     Dates: start: 20160801
  28. FUROSEMIDE. [Concomitant]
     Active Substance: FUROSEMIDE
     Dosage: 40 MG, UNK
     Dates: start: 20180209
  29. ONDANSETRON [Concomitant]
     Active Substance: ONDANSETRON
     Dosage: 8 MG
     Dates: start: 20190222
  30. PHENAZOPYRIDINE. [Concomitant]
     Active Substance: PHENAZOPYRIDINE
  31. TRAZODONE [Concomitant]
     Active Substance: TRAZODONE HYDROCHLORIDE
  32. KLONOPIN [Concomitant]
     Active Substance: CLONAZEPAM
  33. BUTALBITAL W/CAFFEINE/PARACETAMOL [Concomitant]
     Active Substance: ACETAMINOPHEN\BUTALBITAL\CAFFEINE
  34. PROAIR HFA [Concomitant]
     Active Substance: ALBUTEROL SULFATE
  35. LEVOFLOXACIN. [Concomitant]
     Active Substance: LEVOFLOXACIN
     Dosage: 500 MG
     Dates: start: 20190220
  36. ADEMPAS [Concomitant]
     Active Substance: RIOCIGUAT
     Dosage: 0.5 MG, UNK
     Dates: start: 20171221
  37. FUROSEMIDE. [Concomitant]
     Active Substance: FUROSEMIDE
     Dosage: 20 MG
     Dates: start: 20180222
  38. ALBUTEROL. [Concomitant]
     Active Substance: ALBUTEROL
     Dosage: 0.83 %, UNK
     Route: 055
     Dates: start: 20180420
  39. PANTOPRAZOLE [Concomitant]
     Active Substance: PANTOPRAZOLE
     Dosage: 40 MG, UNK
     Dates: start: 20180209
  40. FLONASE [Concomitant]
     Active Substance: FLUTICASONE PROPIONATE
     Dosage: 50 MCG, UNK
     Dates: start: 20180420
  41. FLUTICASONE. [Concomitant]
     Active Substance: FLUTICASONE
  42. HYDROMORPHONE [Concomitant]
     Active Substance: HYDROMORPHONE
  43. IBUPROFEN. [Concomitant]
     Active Substance: IBUPROFEN
  44. IMODIUM AD [Concomitant]
     Active Substance: LOPERAMIDE HYDROCHLORIDE
  45. DICLOFENAC [Concomitant]
     Active Substance: DICLOFENAC
  46. QUETIAPINE. [Concomitant]
     Active Substance: QUETIAPINE
     Dosage: 25 MG
     Dates: start: 20190212
  47. OLANZAPIN [Concomitant]
     Active Substance: OLANZAPINE
  48. IPRATROPIUM [Concomitant]
     Active Substance: IPRATROPIUM
  49. DILAUDID [Concomitant]
     Active Substance: HYDROMORPHONE HYDROCHLORIDE
  50. GABAPENTIN. [Concomitant]
     Active Substance: GABAPENTIN
     Dosage: 400 MG
     Dates: start: 20190210
  51. CLONAZEPAM. [Concomitant]
     Active Substance: CLONAZEPAM
     Dosage: 1 MG
     Dates: start: 20190212
  52. AMOXICILLIN. [Concomitant]
     Active Substance: AMOXICILLIN
  53. CHLORPHENIRAMINE W/HYDROCODONE [Concomitant]
     Active Substance: CHLORPHENIRAMINE\HYDROCODONE
  54. SPIRONOLACTONE. [Concomitant]
     Active Substance: SPIRONOLACTONE
     Dosage: 25 UNK
     Dates: start: 20190210
  55. METOLAZONE. [Concomitant]
     Active Substance: METOLAZONE

REACTIONS (16)
  - Hypersensitivity [Unknown]
  - Myalgia [Unknown]
  - Hypertension [Unknown]
  - Pulmonary arterial hypertension [Not Recovered/Not Resolved]
  - Pain in extremity [Not Recovered/Not Resolved]
  - Nerve injury [Not Recovered/Not Resolved]
  - Nausea [Unknown]
  - Central venous catheterisation [Unknown]
  - Constipation [Unknown]
  - Headache [Unknown]
  - Panic attack [Unknown]
  - Hospitalisation [Unknown]
  - Pain in jaw [Unknown]
  - Malaise [Unknown]
  - Lung disorder [Unknown]
  - Arthralgia [Unknown]

NARRATIVE: CASE EVENT DATE: 20180521
